FAERS Safety Report 19902737 (Version 2)
Quarter: 2024Q1

REPORT INFORMATION
  Report Type: Report from Study
  Country: US (occurrence: US)
  Receive Date: 20211001
  Receipt Date: 20240212
  Transmission Date: 20240410
  Serious: Yes (Hospitalization)
  Sender: FDA-Public Use
  Company Number: US-ACADIA PHARMACEUTICALS INC.-ACA-2021-PIM-003383

PATIENT
  Sex: Male

DRUGS (27)
  1. NUPLAZID [Suspect]
     Active Substance: PIMAVANSERIN TARTRATE
     Indication: Parkinson^s disease
     Dosage: 34 MILLIGRAM, QD
     Route: 048
  2. NUPLAZID [Suspect]
     Active Substance: PIMAVANSERIN TARTRATE
     Dosage: 34 MILLIGRAM, QD
     Route: 048
     Dates: start: 202307
  3. HALOPERIDOL [Concomitant]
     Active Substance: HALOPERIDOL
  4. CEFDINIR [Concomitant]
     Active Substance: CEFDINIR
  5. ATORVASTATIN [Concomitant]
     Active Substance: ATORVASTATIN
  6. CARVEDILOL [Concomitant]
     Active Substance: CARVEDILOL
  7. DIVALPROEX SODIUM [Concomitant]
     Active Substance: DIVALPROEX SODIUM
  8. ELIQUIS [Concomitant]
     Active Substance: APIXABAN
  9. ESCITALOPRAM [Concomitant]
     Active Substance: ESCITALOPRAM OXALATE
  10. GALANTAMINE [Concomitant]
     Active Substance: GALANTAMINE
     Dosage: ER
  11. OMEPRAZOLE [Concomitant]
     Active Substance: OMEPRAZOLE
  12. QUETIAPINE [Concomitant]
     Active Substance: QUETIAPINE
  13. TAMSULOSIN [Concomitant]
     Active Substance: TAMSULOSIN
  14. TRIAMCINOLONE ACETONIDE [Concomitant]
     Active Substance: TRIAMCINOLONE ACETONIDE
     Dosage: 0.1 PERCENT
  15. CARBIDOPA\LEVODOPA [Concomitant]
     Active Substance: CARBIDOPA\LEVODOPA
  16. NITROGLYCERIN [Concomitant]
     Active Substance: NITROGLYCERIN
  17. GABAPENTIN [Concomitant]
     Active Substance: GABAPENTIN
  18. ROPINIROLE [Concomitant]
     Active Substance: ROPINIROLE
  19. OXYCODONE [Concomitant]
     Active Substance: OXYCODONE\OXYCODONE HYDROCHLORIDE
  20. HYDROXYZINE [Concomitant]
     Active Substance: HYDROXYZINE HYDROCHLORIDE
  21. POLYETHYLENE GLYCOLS [Concomitant]
     Active Substance: POLYETHYLENE GLYCOLS
  22. AMOXICILLIN\CLAVULANATE POTASSIUM [Concomitant]
     Active Substance: AMOXICILLIN\CLAVULANATE POTASSIUM
  23. SERTRALINE [Concomitant]
     Active Substance: SERTRALINE HYDROCHLORIDE
  24. MYRBETRIQ [Concomitant]
     Active Substance: MIRABEGRON
  25. FLUCONAZOLE [Concomitant]
     Active Substance: FLUCONAZOLE
  26. SULFAMETHOXAZOLE AND TRIMETHOPRIM [Concomitant]
     Active Substance: SULFAMETHOXAZOLE\TRIMETHOPRIM
  27. KETOCONAZOLE [Concomitant]
     Active Substance: KETOCONAZOLE
     Dosage: 2 PERCENT

REACTIONS (3)
  - Fracture [Unknown]
  - Fall [Unknown]
  - Drug ineffective [Not Recovered/Not Resolved]

NARRATIVE: CASE EVENT DATE: 20210101
